FAERS Safety Report 6406845-0 (Version None)
Quarter: 2009Q4

REPORT INFORMATION
  Report Type: 
  Country: None (occurrence: None)
  Receive Date: 20091020
  Receipt Date: 20091014
  Transmission Date: 20100525
  Serious: Yes (Other)
  Sender: FDA-Public Use
  Company Number: BR-ROCHE-475136

PATIENT
  Sex: Female
  Weight: 46 kg

DRUGS (5)
  1. RIVOTRIL [Suspect]
     Indication: ANXIETY
     Dosage: INDICATION: HEADACHE DUE TO CYSTICERCOSIS; DOSE: 0.5 TAB/DAY
     Route: 048
     Dates: start: 19940501, end: 20081201
  2. RIVOTRIL [Suspect]
     Dosage: STRENGTH: 2.5 MG/ML
     Route: 048
     Dates: start: 20081201, end: 20091005
  3. DAFORIN [Suspect]
     Indication: DIZZINESS
     Route: 048
     Dates: start: 20090926, end: 20091010
  4. CARBAMAZEPINE [Suspect]
     Indication: DIZZINESS
     Route: 048
     Dates: start: 20081201, end: 20081201
  5. EQUILID [Suspect]
     Indication: DIZZINESS
     Dosage: INDICATIONS: ANXIETY, NERVOUSISM AND LOSS OF MEMORY.
     Route: 048
     Dates: start: 20090101, end: 20090801

REACTIONS (21)
  - AMNESIA [None]
  - ANXIETY [None]
  - BLOOD CHOLESTEROL INCREASED [None]
  - BLOOD TRIGLYCERIDES INCREASED [None]
  - CARPAL TUNNEL SYNDROME [None]
  - CONVULSION [None]
  - DEPENDENCE [None]
  - DIARRHOEA [None]
  - DIZZINESS [None]
  - DRUG INEFFECTIVE [None]
  - FACIAL PAIN [None]
  - FEELING ABNORMAL [None]
  - HEADACHE [None]
  - HYPOKINESIA [None]
  - INTERVERTEBRAL DISC PROTRUSION [None]
  - MALAISE [None]
  - PARAESTHESIA [None]
  - RHINITIS ALLERGIC [None]
  - SOMNOLENCE [None]
  - TREMOR [None]
  - WEIGHT DECREASED [None]
